FAERS Safety Report 25088668 (Version 1)
Quarter: 2025Q1

REPORT INFORMATION
  Report Type: Spontaneous
  Country: US (occurrence: US)
  Receive Date: 20250318
  Receipt Date: 20250318
  Transmission Date: 20250408
  Serious: Yes (Life-Threatening, Hospitalization)
  Sender: ACCORD
  Company Number: US-Accord-474052

PATIENT
  Age: 67 Year
  Sex: Female

DRUGS (9)
  1. AMLODIPINE [Suspect]
     Active Substance: AMLODIPINE BESYLATE
  2. LEVETIRACETAM [Suspect]
     Active Substance: LEVETIRACETAM
  3. LEVOTHYROXINE [Suspect]
     Active Substance: LEVOTHYROXINE
  4. METOPROLOL [Suspect]
     Active Substance: METOPROLOL
  5. QUETIAPINE [Suspect]
     Active Substance: QUETIAPINE
  6. MELATONIN [Suspect]
     Active Substance: MELATONIN
  7. MIRTAZAPINE [Suspect]
     Active Substance: MIRTAZAPINE
  8. PANTOPRAZOLE [Suspect]
     Active Substance: PANTOPRAZOLE
  9. QUETIAPINE [Suspect]
     Active Substance: QUETIAPINE

REACTIONS (9)
  - Hypotension [Recovered/Resolved]
  - Mental status changes [Recovered/Resolved]
  - Respiratory failure [Recovered/Resolved]
  - Hypercapnia [Recovered/Resolved]
  - Blood creatinine increased [Recovered/Resolved]
  - Metabolic acidosis [Recovered/Resolved]
  - Vasoplegia syndrome [Recovered/Resolved]
  - Suicide attempt [Unknown]
  - Intentional overdose [Unknown]
